FAERS Safety Report 9208774 (Version 4)
Quarter: 2013Q3

REPORT INFORMATION
  Report Type: Spontaneous
  Country: US (occurrence: US)
  Receive Date: 20130404
  Receipt Date: 20130816
  Transmission Date: 20140515
  Serious: No
  Sender: FDA-Public Use
  Company Number: US-PFIZER INC-2013101521

PATIENT
  Age: 56 Year
  Sex: Male

DRUGS (5)
  1. LYRICA [Suspect]
     Indication: PAIN IN EXTREMITY
     Dosage: 75 MG, 2X/DAY
     Route: 048
     Dates: start: 20120801
  2. LYRICA [Suspect]
     Indication: DIABETIC NEUROPATHY
  3. LYRICA [Suspect]
     Indication: NEUROPATHY PERIPHERAL
  4. LISINOPRIL [Concomitant]
     Dosage: UNK
  5. COREG [Concomitant]
     Dosage: UNK

REACTIONS (4)
  - Drug ineffective [Unknown]
  - Pain in extremity [Unknown]
  - Intentional drug misuse [Unknown]
  - Rash [Recovered/Resolved]
